FAERS Safety Report 6235737-5 (Version None)
Quarter: 2009Q2

REPORT INFORMATION
  Report Type: 
  Country: None (occurrence: None)
  Receive Date: 20090619
  Receipt Date: 20090605
  Transmission Date: 20091009
  Serious: Yes (Hospitalization, Other)
  Sender: FDA-Public Use
  Company Number: CH-RANBAXY-2009RR-24827

PATIENT
  Age: 36 Year
  Sex: Male

DRUGS (6)
  1. LAMIVUDINE [Suspect]
  2. LOPINAVIR AND RITONAVIR [Suspect]
  3. NEVIRAPINE [Suspect]
  4. ZIDOVUDINE [Suspect]
  5. COTRIMOXAZOLE [Concomitant]
     Indication: PNEUMOCYSTIS JIROVECI INFECTION
  6. PREDNISOLONE [Concomitant]
     Indication: IMMUNE RECONSTITUTION SYNDROME

REACTIONS (2)
  - IMMUNE RECONSTITUTION SYNDROME [None]
  - SPLENIC RUPTURE [None]
